FAERS Safety Report 5387583-2 (Version None)
Quarter: 2007Q3

REPORT INFORMATION
  Report Type: 
  Country: None (occurrence: None)
  Receive Date: 20070711
  Receipt Date: 20070711
  Transmission Date: 20080115
  Serious: Yes (Other)
  Sender: FDA-Public Use
  Company Number: None

PATIENT
  Sex: Female

DRUGS (4)
  1. ABILIFY [Suspect]
     Indication: BIPOLAR DISORDER
     Dosage: 30 MG DAILY PO
     Route: 048
     Dates: start: 20070531, end: 20070601
  2. BENTYL [Concomitant]
  3. ALKASELTZER [Concomitant]
  4. CYMBALTA [Concomitant]

REACTIONS (7)
  - COLD SWEAT [None]
  - DYSKINESIA [None]
  - DYSPHAGIA [None]
  - DYSPHONIA [None]
  - MUSCULOSKELETAL STIFFNESS [None]
  - SWOLLEN TONGUE [None]
  - THROAT TIGHTNESS [None]
